FAERS Safety Report 25188736 (Version 1)
Quarter: 2025Q2

REPORT INFORMATION
  Report Type: Spontaneous
  Country: US (occurrence: US)
  Receive Date: 20250411
  Receipt Date: 20250411
  Transmission Date: 20250717
  Serious: No
  Sender: MADRIGAL PHARMACEUTICALS
  Company Number: US-MADRIGAL PHARMACEUTICALS, INC-2025REZ0127

PATIENT

DRUGS (7)
  1. REZDIFFRA [Suspect]
     Active Substance: RESMETIROM
     Indication: Hepatic fibrosis
     Dosage: 80 MILLIGRAM, QD
     Route: 048
     Dates: start: 20241108, end: 20241223
  2. CRESTOR [Concomitant]
     Active Substance: ROSUVASTATIN CALCIUM
     Dosage: 5 MILLIGRAM, QD
  3. ALLOPURINOL [Concomitant]
     Active Substance: ALLOPURINOL
  4. METOPROLOL [Concomitant]
     Active Substance: METOPROLOL
  5. ALDACTONE [Concomitant]
     Active Substance: SPIRONOLACTONE
  6. TELMISARTAN [Concomitant]
     Active Substance: TELMISARTAN
  7. FISH OIL [Concomitant]
     Active Substance: FISH OIL

REACTIONS (1)
  - Pruritus [Recovered/Resolved]

NARRATIVE: CASE EVENT DATE: 20241201
